FAERS Safety Report 5502565-5 (Version None)
Quarter: 2007Q4

REPORT INFORMATION
  Report Type: 
  Country: None (occurrence: None)
  Receive Date: 20071031
  Receipt Date: 20071024
  Transmission Date: 20080405
  Serious: Yes (Other)
  Sender: FDA-Public Use
  Company Number: PHFR2007GB02961

PATIENT
  Age: 41 Year
  Sex: Male

DRUGS (2)
  1. GLEEVEC [Suspect]
     Indication: CHRONIC MYELOID LEUKAEMIA
     Dosage: 400MG / DAY
     Route: 048
     Dates: start: 20020218, end: 20050106
  2. GLEEVEC [Suspect]
     Dosage: 600MG / DAY
     Route: 048
     Dates: start: 20050106

REACTIONS (3)
  - ABDOMINAL MASS [None]
  - GASTROINTESTINAL CARCINOMA [None]
  - LAPAROTOMY [None]
